FAERS Safety Report 5796663-9 (Version None)
Quarter: 2008Q2

REPORT INFORMATION
  Report Type: 
  Country: None (occurrence: None)
  Receive Date: 20080627
  Receipt Date: 20080613
  Transmission Date: 20081010
  Serious: Yes (Hospitalization)
  Sender: FDA-Public Use
  Company Number: 230155M08USA

PATIENT
  Age: 59 Year
  Sex: Female

DRUGS (3)
  1. REBIF [Suspect]
     Indication: MULTIPLE SCLEROSIS
     Dosage: 44 MCG, 3 IN 1 WEEKS, SUBCUTANEOUS
     Route: 058
     Dates: start: 20080218
  2. BACTRIM DS [Suspect]
     Indication: URINARY TRACT INFECTION
     Dosage: 2 IN 1 DAYS, ORAL
     Route: 048
     Dates: start: 20080501, end: 20080601
  3. ASPIRIN [Concomitant]

REACTIONS (5)
  - CONSTIPATION [None]
  - HALLUCINATION [None]
  - LUNG INFILTRATION [None]
  - UROSEPSIS [None]
  - URTICARIA [None]
